FAERS Safety Report 7956009-4 (Version None)
Quarter: 2011Q4

REPORT INFORMATION
  Report Type: 
  Country: None (occurrence: None)
  Receive Date: 20111205
  Receipt Date: 20111123
  Transmission Date: 20120403
  Serious: Yes (Life-Threatening, Hospitalization, Disabling, Other)
  Sender: FDA-Public Use
  Company Number: CZ-AMGEN-CZECT2011052924

PATIENT
  Age: 59 Year
  Sex: Male

DRUGS (4)
  1. PREDNISONE [Concomitant]
     Dosage: 15 MG, 1X/DAY
     Dates: start: 20060201
  2. SULFASALAZINE [Concomitant]
     Dosage: 2 G, 1X/DAY
     Dates: start: 20080504
  3. DICLOFENAC [Concomitant]
     Dosage: 150 MG, 1X/DAY
     Dates: start: 20080806
  4. ETANERCEPT [Suspect]
     Indication: RHEUMATOID ARTHRITIS
     Dosage: 50 MG, WEEKLY
     Route: 058
     Dates: start: 20090216

REACTIONS (5)
  - ABDOMINAL ABSCESS [None]
  - ENTEROCUTANEOUS FISTULA [None]
  - INFECTIOUS PERITONITIS [None]
  - SUBILEUS [None]
  - DIVERTICULITIS [None]
